FAERS Safety Report 7022330-X (Version None)
Quarter: 2010Q3

REPORT INFORMATION
  Report Type: 
  Country: None (occurrence: None)
  Receive Date: 20100928
  Receipt Date: 20100915
  Transmission Date: 20110219
  Serious: Yes (Life-Threatening, Other)
  Sender: FDA-Public Use
  Company Number: 2010BN000053

PATIENT
  Age: 59 Year
  Sex: Male

DRUGS (8)
  1. MELPHALAN HYDROCHLORIDE [Suspect]
     Indication: MULTIPLE MYELOMA
  2. VINCRISTINE [Suspect]
     Indication: MULTIPLE MYELOMA
  3. DOXORUBICIN HCL [Suspect]
     Indication: MULTIPLE MYELOMA
  4. DEXAMETHASONE [Suspect]
     Indication: MULTIPLE MYELOMA
  5. RITUXIMAB (RITUXIMAB) [Suspect]
     Indication: NON-HODGKIN'S LYMPHOMA
  6. VITAMIN K ANTAGONIST (NO PREF. NAME) [Suspect]
     Indication: THROMBOSIS PROPHYLAXIS
  7. CON MEDS [Concomitant]
  8. PREV MEDS [Concomitant]

REACTIONS (2)
  - EMBOLISM VENOUS [None]
  - MYOCARDIAL INFARCTION [None]
